FAERS Safety Report 18542334 (Version 1)
Quarter: 2020Q4

REPORT INFORMATION
  Report Type: Spontaneous
  Country: DE (occurrence: DE)
  Receive Date: 20201125
  Receipt Date: 20201125
  Transmission Date: 20210114
  Serious: Yes (Other)
  Sender: FDA-Public Use
  Company Number: DE-AMGEN-DEUSP2020187508

PATIENT
  Age: 68 Year
  Sex: Female

DRUGS (7)
  1. XGEVA [Suspect]
     Active Substance: DENOSUMAB
     Indication: PRODUCT USED FOR UNKNOWN INDICATION
     Dosage: UNK
     Route: 065
     Dates: start: 2016
  2. PALBOCICLIB [Concomitant]
     Active Substance: PALBOCICLIB
  3. CAPECITABINE. [Concomitant]
     Active Substance: CAPECITABINE
  4. TAMOXIFEN [Concomitant]
     Active Substance: TAMOXIFEN
     Dosage: UNK
     Dates: start: 2016
  5. LETROZOL [Concomitant]
     Active Substance: LETROZOLE
  6. OLAPARIB. [Concomitant]
     Active Substance: OLAPARIB
  7. FULVESTRANT. [Concomitant]
     Active Substance: FULVESTRANT

REACTIONS (1)
  - Breast cancer metastatic [Unknown]
